FAERS Safety Report 13568948 (Version 2)
Quarter: 2017Q3

REPORT INFORMATION
  Report Type: Spontaneous
  Country: US (occurrence: US)
  Receive Date: 20170522
  Receipt Date: 20170811
  Transmission Date: 20171127
  Serious: Yes (Other)
  Sender: FDA-Public Use
  Company Number: US-SAOL THERAPEUTICS-2017SAO00862

PATIENT
  Age: 12 Year
  Sex: Male
  Weight: 24.4 kg

DRUGS (2)
  1. LIORESAL [Suspect]
     Active Substance: BACLOFEN
     Indication: MUSCLE SPASTICITY
     Dosage: 100 ?G, \DAY
     Route: 037
     Dates: start: 2017
  2. LIORESAL [Suspect]
     Active Substance: BACLOFEN
     Indication: MUSCLE SPASTICITY
     Dosage: 100 ?G, \DAY
     Route: 037
     Dates: start: 20170216, end: 2017

REACTIONS (2)
  - Complication associated with device [Recovered/Resolved]
  - Implant site reaction [Recovered/Resolved]

NARRATIVE: CASE EVENT DATE: 20170511
